FAERS Safety Report 12173535 (Version 1)
Quarter: 2016Q1

REPORT INFORMATION
  Report Type: Report from Study
  Country: US (occurrence: US)
  Receive Date: 20160311
  Receipt Date: 20160311
  Transmission Date: 20160526
  Serious: Yes (Hospitalization)
  Sender: FDA-Public Use
  Company Number: US-ASTRAZENECA-2016SE09530

PATIENT
  Age: 261 Day
  Sex: Female
  Weight: 6.5 kg

DRUGS (2)
  1. SYNAGIS [Suspect]
     Active Substance: PALIVIZUMAB
     Indication: RESPIRATORY SYNCYTIAL VIRUS INFECTION
     Route: 030
     Dates: start: 20151222
  2. SYNAGIS [Suspect]
     Active Substance: PALIVIZUMAB
     Indication: RESPIRATORY SYNCYTIAL VIRUS INFECTION
     Route: 030
     Dates: start: 20151219

REACTIONS (10)
  - Poor feeding infant [Unknown]
  - Drug ineffective [Unknown]
  - Cough [Recovered/Resolved]
  - Respiratory distress [Unknown]
  - Respiratory syncytial virus bronchiolitis [Unknown]
  - Hypoxia [Recovered/Resolved]
  - Post-tussive vomiting [Unknown]
  - Dyspnoea [Recovered/Resolved]
  - Fatigue [Unknown]
  - Dehydration [Unknown]

NARRATIVE: CASE EVENT DATE: 20160101
